FAERS Safety Report 7119336-9 (Version None)
Quarter: 2010Q4

REPORT INFORMATION
  Report Type: 
  Country: None (occurrence: None)
  Receive Date: 20101123
  Receipt Date: 20101115
  Transmission Date: 20110411
  Serious: Yes (Hospitalization)
  Sender: FDA-Public Use
  Company Number: US-ABBOTT-10P-163-0685360-00

PATIENT
  Sex: Female

DRUGS (2)
  1. HUMIRA [Suspect]
     Indication: CROHN'S DISEASE
     Dates: end: 20100101
  2. HUMIRA [Suspect]
     Dosage: RE-STARTED
     Dates: start: 20101001

REACTIONS (2)
  - CROHN'S DISEASE [None]
  - HOSPITALISATION [None]
